FAERS Safety Report 8948169 (Version 1)
Quarter: 2012Q4

REPORT INFORMATION
  Report Type: Spontaneous
  Country: ES (occurrence: None)
  Receive Date: 20121126
  Receipt Date: 20121126
  Transmission Date: 20130627
  Serious: Yes (Other)
  Sender: FDA-Public Use
  Company Number: 1493417

PATIENT
  Age: 66 Year
  Sex: Male
  Weight: 47.63 kg

DRUGS (1)
  1. PACLITAXEL [Suspect]
     Indication: LUNG ADENOCARCINOMA
     Dosage: 400 Mg milligram(s), Cyclical, Intravenous drip
     Route: 041
     Dates: start: 20120910, end: 20120910

REACTIONS (3)
  - Bronchospasm [None]
  - Hot flush [None]
  - Chest pain [None]
